FAERS Safety Report 18732186 (Version 1)
Quarter: 2021Q1

REPORT INFORMATION
  Report Type: Spontaneous
  Country: FR (occurrence: FR)
  Receive Date: 20210112
  Receipt Date: 20210112
  Transmission Date: 20210419
  Serious: Yes (Other)
  Sender: FDA-Public Use
  Company Number: FR-MYLANLABS-2021M1001310

PATIENT
  Age: 31 Month
  Sex: Male

DRUGS (1)
  1. QUETIAPINE MYLAN [Suspect]
     Active Substance: QUETIAPINE
     Indication: DEPRESSION
     Dosage: UNK
     Route: 064

REACTIONS (4)
  - Psychomotor retardation [Unknown]
  - Speech disorder [Unknown]
  - Autism spectrum disorder [Unknown]
  - Foetal exposure during pregnancy [Recovered/Resolved]
